FAERS Safety Report 5155811-4 (Version None)
Quarter: 2006Q4

REPORT INFORMATION
  Report Type: 
  Country: None (occurrence: None)
  Receive Date: 20061113
  Receipt Date: 20061101
  Transmission Date: 20070319
  Serious: Yes (Hospitalization)
  Sender: FDA-Public Use
  Company Number: 163-C5013-06060259

PATIENT
  Age: 57 Year
  Sex: Female
  Weight: 71.4 kg

DRUGS (6)
  1. CC-5013 (LENALIDOMIDE) (CAPSULES) [Suspect]
     Indication: MULTIPLE MYELOMA
     Dosage: 25 MG, QHS ON DAYS 1-21, ORAL
     Route: 048
     Dates: start: 20060515
  2. DEXAMETHASONE TAB [Suspect]
     Indication: MULTIPLE MYELOMA
     Dosage: 40 MG, DAILY ON DAYS 1-4, 9-12, 17-20, ORAL
     Route: 048
     Dates: start: 20060515, end: 20060730
  3. VITAMIN CAP [Concomitant]
  4. PROCRIT [Concomitant]
  5. COUMADIN [Concomitant]
  6. RED BLOOD CELLS [Concomitant]

REACTIONS (12)
  - ALANINE AMINOTRANSFERASE INCREASED [None]
  - ASPARTATE AMINOTRANSFERASE INCREASED [None]
  - BLOOD ALKALINE PHOSPHATASE INCREASED [None]
  - HAEMOGLOBIN INCREASED [None]
  - HAEMOLYSIS [None]
  - HYPERBILIRUBINAEMIA [None]
  - HYPERSPLENISM [None]
  - MALIGNANT NEOPLASM PROGRESSION [None]
  - MYELOMA RECURRENCE [None]
  - NEUROPATHY PERIPHERAL [None]
  - PYREXIA [None]
  - STEM CELL TRANSPLANT [None]
